FAERS Safety Report 8443367 (Version 2)
Quarter: 2014Q1

REPORT INFORMATION
  Report Type: Spontaneous
  Country: US (occurrence: US)
  Receive Date: 20120306
  Receipt Date: 20140113
  Transmission Date: 20141002
  Serious: Yes (Hospitalization)
  Sender: FDA-Public Use
  Company Number: US-GLAXOSMITHKLINE-A0932431A

PATIENT
  Age: 52 Year
  Sex: Female

DRUGS (1)
  1. AVANDIA [Suspect]
     Indication: DIABETES MELLITUS
     Dosage: 8MG PER DAY
     Route: 048
     Dates: start: 20020111, end: 20080817

REACTIONS (6)
  - Cardiac disorder [Not Recovered/Not Resolved]
  - Cardiovascular disorder [Unknown]
  - Cerebrovascular accident [Unknown]
  - Chest pain [Unknown]
  - Hypoaesthesia [Unknown]
  - Cardiac failure congestive [Unknown]
